FAERS Safety Report 13836239 (Version 3)
Quarter: 2018Q1

REPORT INFORMATION
  Report Type: Spontaneous
  Country: US (occurrence: US)
  Receive Date: 20170804
  Receipt Date: 20180126
  Transmission Date: 20180508
  Serious: Yes (Hospitalization)
  Sender: FDA-Public Use
  Company Number: US-PFIZER INC-2017338302

PATIENT
  Age: 71 Year
  Sex: Female
  Weight: 80.74 kg

DRUGS (1)
  1. IBRANCE [Suspect]
     Active Substance: PALBOCICLIB
     Indication: BREAST CANCER FEMALE
     Dosage: 125 MG, CYCLIC (125MG 1 TABLET A DAY 21 DAYS ON AND 7 DAYS OFF)
     Dates: start: 201702

REACTIONS (5)
  - Hypoaesthesia [Recovered/Resolved]
  - Thrombosis [Unknown]
  - Skin discolouration [Unknown]
  - Blood test abnormal [Not Recovered/Not Resolved]
  - Expired product administered [Unknown]

NARRATIVE: CASE EVENT DATE: 201702
